FAERS Safety Report 4844683-0 (Version None)
Quarter: 2005Q4

REPORT INFORMATION
  Report Type: 
  Country: None (occurrence: None)
  Receive Date: 20051129
  Receipt Date: 20051119
  Transmission Date: 20060501
  Serious: Yes (Other)
  Sender: FDA-Public Use
  Company Number: 2005157699

PATIENT
  Sex: Female
  Weight: 49.8957 kg

DRUGS (1)
  1. BENADRYL [Suspect]
     Dosage: ORAL
     Route: 048

REACTIONS (3)
  - ANAPHYLACTIC REACTION [None]
  - DYSPNOEA [None]
  - HEART RATE INCREASED [None]
